FAERS Safety Report 8011471-6 (Version None)
Quarter: 2011Q4

REPORT INFORMATION
  Report Type: 
  Country: None (occurrence: None)
  Receive Date: 20111228
  Receipt Date: 20111219
  Transmission Date: 20120403
  Serious: Yes (Hospitalization, Other)
  Sender: FDA-Public Use
  Company Number: US-PFIZER INC-2010085406

PATIENT
  Sex: Female

DRUGS (5)
  1. CELEXA [Concomitant]
     Indication: BLOOD PRESSURE
     Dosage: 40 MG, 1X/DAY
     Route: 048
  2. DIOVAN [Concomitant]
     Dosage: 180 MG, 1X/DAY
     Route: 048
     Dates: start: 20040625
  3. DILANTIN [Suspect]
     Indication: CONVULSION
     Dosage: 100 MG, 3X/DAY
     Route: 048
     Dates: start: 20040707, end: 20040730
  4. CARDIZEM CD [Concomitant]
     Indication: BLOOD PRESSURE
     Dosage: 240 MG, 1X/DAY
     Route: 048
  5. XANAX [Concomitant]
     Dosage: 0.25 MG, EVERY 4 HRS AS NEEDED

REACTIONS (1)
  - STEVENS-JOHNSON SYNDROME [None]
